FAERS Safety Report 15844037 (Version 1)
Quarter: 2019Q1

REPORT INFORMATION
  Report Type: Report from Study
  Country: US (occurrence: US)
  Receive Date: 20190118
  Receipt Date: 20190118
  Transmission Date: 20190417
  Serious: No
  Sender: FDA-Public Use
  Company Number: PHEH2019US002458

PATIENT
  Sex: Female

DRUGS (1)
  1. GILENYA [Suspect]
     Active Substance: FINGOLIMOD HYDROCHLORIDE
     Indication: DIARRHOEA
     Dosage: 0.5 MG, QD
     Route: 048
     Dates: start: 20180316

REACTIONS (2)
  - Fatigue [Unknown]
  - Product use in unapproved indication [Unknown]
